FAERS Safety Report 12618567 (Version 1)
Quarter: 2016Q3

REPORT INFORMATION
  Report Type: Spontaneous
  Country: US (occurrence: US)
  Receive Date: 20160803
  Receipt Date: 20160803
  Transmission Date: 20161109
  Serious: Yes (Hospitalization)
  Sender: FDA-Public Use
  Company Number: US-ASTRAZENECA-2016SE80728

PATIENT
  Age: 23223 Day
  Sex: Female
  Weight: 77.8 kg

DRUGS (18)
  1. INDERAL [Suspect]
     Active Substance: PROPRANOLOL HYDROCHLORIDE
     Indication: ANXIETY
     Route: 048
     Dates: start: 20150403, end: 20150407
  2. LITHOBID [Suspect]
     Active Substance: LITHIUM CARBONATE
     Route: 065
  3. INDERAL [Suspect]
     Active Substance: PROPRANOLOL HYDROCHLORIDE
     Indication: ANXIETY
     Route: 048
     Dates: start: 20131029
  4. NEURONTIN [Concomitant]
     Active Substance: GABAPENTIN
  5. OMEPRAZOLE. [Suspect]
     Active Substance: OMEPRAZOLE
     Route: 048
  6. SYNTHROID [Concomitant]
     Active Substance: LEVOTHYROXINE SODIUM
  7. ATIVAN [Concomitant]
     Active Substance: LORAZEPAM
  8. INDERAL [Suspect]
     Active Substance: PROPRANOLOL HYDROCHLORIDE
     Indication: ANXIETY
     Dosage: 5 MG EVENING (PM)
     Route: 048
     Dates: start: 20150403, end: 20150407
  9. RUXOLITINIB [Suspect]
     Active Substance: RUXOLITINIB
     Route: 048
  10. LIPITOR [Concomitant]
     Active Substance: ATORVASTATIN CALCIUM
  11. PROTONIX [Concomitant]
     Active Substance: PANTOPRAZOLE SODIUM
  12. CELEXA [Concomitant]
     Active Substance: CITALOPRAM HYDROBROMIDE
  13. NORCO [Concomitant]
     Active Substance: ACETAMINOPHEN\HYDROCODONE BITARTRATE
  14. VESICARE [Concomitant]
     Active Substance: SOLIFENACIN SUCCINATE
  15. ASPIRIN. [Concomitant]
     Active Substance: ASPIRIN
  16. INCB018424 [Suspect]
     Active Substance: RUXOLITINIB
     Route: 065
  17. ANTIVERT [Concomitant]
     Active Substance: MECLIZINE HYDROCHLORIDE
  18. VOLTAREN [Concomitant]
     Active Substance: DICLOFENAC SODIUM

REACTIONS (3)
  - Polycythaemia [Unknown]
  - Sinus bradycardia [Unknown]
  - Hypotension [Recovered/Resolved]

NARRATIVE: CASE EVENT DATE: 20150403
